FAERS Safety Report 9679022 (Version 3)
Quarter: 2014Q3

REPORT INFORMATION
  Report Type: Spontaneous
  Country: US (occurrence: US)
  Receive Date: 20131108
  Receipt Date: 20140819
  Transmission Date: 20150326
  Serious: Yes (Other)
  Sender: FDA-Public Use
  Company Number: US-009507513-1311USA003211

PATIENT
  Sex: Female
  Weight: 85.71 kg

DRUGS (2)
  1. NUVARING [Suspect]
     Active Substance: ETHINYL ESTRADIOL\ETONOGESTREL
     Dosage: 0.12MG-0.015MG/24HR
     Route: 067
     Dates: start: 20130523
  2. NUVARING [Suspect]
     Active Substance: ETHINYL ESTRADIOL\ETONOGESTREL
     Dosage: 0.12MG-0.015MG/24HR
     Route: 067
     Dates: start: 200612, end: 200909

REACTIONS (1)
  - Pulmonary embolism [Unknown]

NARRATIVE: CASE EVENT DATE: 20130520
